FAERS Safety Report 14944274 (Version 1)
Quarter: 2018Q2

REPORT INFORMATION
  Report Type: Spontaneous
  Country: JP (occurrence: JP)
  Receive Date: 20180528
  Receipt Date: 20180528
  Transmission Date: 20180711
  Serious: Yes (Life-Threatening, Other)
  Sender: FDA-Public Use
  Company Number: PHJP2018JP011441

PATIENT
  Age: 60 Year
  Sex: Male

DRUGS (5)
  1. NEORAL [Suspect]
     Active Substance: CYCLOSPORINE
     Indication: LIVER TRANSPLANT REJECTION
     Dosage: UNK
     Route: 048
     Dates: start: 201503, end: 201603
  2. MYCOPHENOLATE MOFETIL. [Concomitant]
     Active Substance: MYCOPHENOLATE MOFETIL
     Dosage: UNK
     Route: 065
  3. MYCOPHENOLATE MOFETIL. [Concomitant]
     Active Substance: MYCOPHENOLATE MOFETIL
     Indication: LIVER TRANSPLANT REJECTION
     Dosage: UNK
     Route: 065
     Dates: start: 201501
  4. NEORAL [Suspect]
     Active Substance: CYCLOSPORINE
     Dosage: UNK
     Route: 048
  5. NEXAVAR [Concomitant]
     Active Substance: SORAFENIB
     Indication: PRODUCT USED FOR UNKNOWN INDICATION
     Dosage: UNK
     Route: 065
     Dates: start: 201511, end: 201603

REACTIONS (3)
  - Transplant rejection [Unknown]
  - Metastases to lung [Unknown]
  - Renal impairment [Unknown]

NARRATIVE: CASE EVENT DATE: 201510
